FAERS Safety Report 15670267 (Version 1)
Quarter: 2018Q4

REPORT INFORMATION
  Report Type: Spontaneous
  Country: DE (occurrence: DE)
  Receive Date: 20181129
  Receipt Date: 20181129
  Transmission Date: 20190205
  Serious: Yes (Hospitalization)
  Sender: FDA-Public Use
  Company Number: DE-VERTEX PHARMACEUTICALS-2018-008685

PATIENT
  Age: 43 Year
  Sex: Female

DRUGS (3)
  1. ORKAMBI [Suspect]
     Active Substance: IVACAFTOR\LUMACAFTOR
     Indication: CYSTIC FIBROSIS
     Dosage: UNSPECIFED DOSE, BID
     Route: 048
     Dates: start: 201511
  2. INSULIN [Concomitant]
     Active Substance: INSULIN NOS
  3. KREON [Concomitant]
     Active Substance: PANCRELIPASE

REACTIONS (2)
  - Gait disturbance [Unknown]
  - Staphylococcal infection [Unknown]
